FAERS Safety Report 6690013-1 (Version None)
Quarter: 2010Q2

REPORT INFORMATION
  Report Type: 
  Country: None (occurrence: None)
  Receive Date: 20100421
  Receipt Date: 20100409
  Transmission Date: 20101027
  Serious: Yes (Other)
  Sender: FDA-Public Use
  Company Number: PHHY2009FR22724

PATIENT
  Sex: Female
  Weight: 66 kg

DRUGS (6)
  1. LESCOL [Suspect]
     Indication: HYPERCHOLESTEROLAEMIA
     Dosage: 80MG PER DAY AND DURING THE 7 FIRST WEEKS OF PREGNANCY
     Route: 065
     Dates: start: 20060101
  2. TRIATEC [Concomitant]
     Indication: CORONARY ARTERY INSUFFICIENCY
     Dosage: 10 MGD AILY,AND DURING THE 7 FIRST WEEKS OF PREGNANCYUNK
     Dates: start: 20060101
  3. ATENOLOL [Concomitant]
     Indication: CORONARY ARTERY INSUFFICIENCY
     Dosage: 50 MG DAILYAND DURING THE 13 FIRST WEEKS OF PREGNANCY
     Dates: start: 20060101
  4. KARDEGIC [Concomitant]
     Indication: CORONARY ARTERY INSUFFICIENCY
     Dosage: 75 MG
     Dates: start: 20060101
  5. LUTERAN [Concomitant]
     Indication: CONTRACEPTION
     Dosage: 10 MG DAILYAND DURING THE 7 FIRST WEEKS OF PREGNANCY
     Dates: start: 20070101
  6. LANTUS [Concomitant]

REACTIONS (3)
  - CAESAREAN SECTION [None]
  - DRUG EXPOSURE DURING PREGNANCY [None]
  - NORMAL NEWBORN [None]
